FAERS Safety Report 9543718 (Version 3)
Quarter: 2016Q2

REPORT INFORMATION
  Report Type: Report from Study
  Country: US (occurrence: US)
  Receive Date: 20130923
  Receipt Date: 20160413
  Transmission Date: 20160815
  Serious: Yes (Other)
  Sender: FDA-Public Use
  Company Number: US-ROCHE-1279068

PATIENT
  Sex: Male

DRUGS (1)
  1. LUCENTIS [Suspect]
     Active Substance: RANIBIZUMAB
     Indication: NEOVASCULAR AGE-RELATED MACULAR DEGENERATION
     Dosage: BOTH EYES
     Route: 050

REACTIONS (6)
  - Malaise [Unknown]
  - Vision blurred [Not Recovered/Not Resolved]
  - Hypoacusis [Unknown]
  - Blindness [Unknown]
  - Rhinorrhoea [Unknown]
  - Eye pain [Unknown]
